FAERS Safety Report 5059977-6 (Version None)
Quarter: 2006Q3

REPORT INFORMATION
  Report Type: 
  Country: None (occurrence: None)
  Receive Date: 20060719
  Receipt Date: 20060707
  Transmission Date: 20061208
  Serious: Yes (Hospitalization)
  Sender: FDA-Public Use
  Company Number: GXKR2006IT03924

PATIENT
  Age: 44 Year
  Sex: Male
  Weight: 49.4 kg

DRUGS (7)
  1. AMOXICILLIN+CLAVULANATE [Suspect]
     Indication: OVERGROWTH BACTERIAL
     Dosage: SEE IMAGE
     Route: 048
     Dates: start: 20040601, end: 20040101
  2. AMOXICILLIN+CLAVULANATE [Suspect]
     Indication: OVERGROWTH BACTERIAL
     Dosage: SEE IMAGE
     Route: 048
  3. OMEPRAZOLE [Suspect]
     Indication: GASTROINTESTINAL HYPOMOTILITY
     Dosage: 20 MG, BID
  4. DIET (NO INGREDIENTS/SUBSTANCES) [Suspect]
  5. NEOSTIGMINE BROMIDE [Concomitant]
  6. TRIMEBUTINE [Concomitant]
  7. PAROXETINE HCL [Concomitant]

REACTIONS (11)
  - ABDOMINAL DISTENSION [None]
  - ABDOMINAL PAIN [None]
  - ACHLORHYDRIA [None]
  - BLOOD ETHANOL INCREASED [None]
  - CANDIDIASIS [None]
  - CONFUSIONAL STATE [None]
  - DISORIENTATION [None]
  - DRUG INTERACTION [None]
  - DYSARTHRIA [None]
  - ERUCTATION [None]
  - MUSCLE ENZYME INCREASED [None]
